FAERS Safety Report 8839166 (Version 1)
Quarter: 2012Q4

REPORT INFORMATION
  Report Type: 
  Country: US (occurrence: US)
  Receive Date: 20121015
  Receipt Date: 20121015
  Transmission Date: 20130627
  Serious: Yes (Death, Hospitalization, Other)
  Sender: FDA-Public Use
  Company Number: US-TEVA-363812USA

PATIENT
  Age: 16 Year
  Sex: Female

DRUGS (1)
  1. MINOCYCLINE [Suspect]
     Indication: ACNE
     Route: 065

REACTIONS (6)
  - Drug reaction with eosinophilia and systemic symptoms [Unknown]
  - Cardiogenic shock [Unknown]
  - Myocarditis [Recovered/Resolved]
  - Multi-organ failure [Unknown]
  - Pulmonary embolism [Unknown]
  - Death [Fatal]
